FAERS Safety Report 20642452 (Version 1)
Quarter: 2022Q1

REPORT INFORMATION
  Report Type: Spontaneous
  Country: US (occurrence: None)
  Receive Date: 20220325
  Receipt Date: 20220325
  Transmission Date: 20220423
  Serious: Yes (Hospitalization)
  Sender: FDA-Public Use
  Company Number: None

PATIENT
  Age: 54 Year
  Sex: Female
  Weight: 60.8 kg

DRUGS (2)
  1. FLUOROURACIL [Suspect]
     Active Substance: FLUOROURACIL
     Dates: end: 20220211
  2. CISPLATIN [Suspect]
     Active Substance: CISPLATIN
     Dates: end: 20220207

REACTIONS (8)
  - Headache [None]
  - Ear pain [None]
  - Tinnitus [None]
  - Mastoiditis [None]
  - Mastoid effusion [None]
  - Bone erosion [None]
  - Osteomyelitis [None]
  - Cerumen impaction [None]

NARRATIVE: CASE EVENT DATE: 20220313
